FAERS Safety Report 9282459 (Version 2)
Quarter: 2013Q2

REPORT INFORMATION
  Report Type: Spontaneous
  Country: US (occurrence: US)
  Receive Date: 20130510
  Receipt Date: 20130514
  Transmission Date: 20140414
  Serious: No
  Sender: FDA-Public Use
  Company Number: US-BAYER-2013-058436

PATIENT
  Sex: Female

DRUGS (2)
  1. YAZ [Suspect]
     Dosage: UNK
     Dates: end: 201303
  2. YAZ [Suspect]
     Dosage: UNK

REACTIONS (5)
  - Menstrual disorder [None]
  - Amenorrhoea [None]
  - Inappropriate schedule of drug administration [None]
  - Abdominal pain [None]
  - Menstrual disorder [None]
